FAERS Safety Report 24631254 (Version 1)
Quarter: 2024Q4

REPORT INFORMATION
  Report Type: Spontaneous
  Country: US (occurrence: US)
  Receive Date: 20241118
  Receipt Date: 20241118
  Transmission Date: 20250115
  Serious: Yes (Hospitalization, Other)
  Sender: MYLAN
  Company Number: US-MYLANLABS-2024M1102252

PATIENT
  Age: 63 Year
  Sex: Male

DRUGS (13)
  1. MYCOPHENOLATE MOFETIL [Suspect]
     Active Substance: MYCOPHENOLATE MOFETIL
     Indication: Immunosuppressant drug therapy
     Dosage: 1000 MILLIGRAM, BID
     Route: 065
  2. PREDNISONE [Suspect]
     Active Substance: PREDNISONE
     Indication: Immunosuppressant drug therapy
     Dosage: 5 MILLIGRAM, QD
     Route: 065
  3. EVEROLIMUS [Suspect]
     Active Substance: EVEROLIMUS
     Indication: Immunosuppressant drug therapy
     Dosage: UNK
     Route: 065
  4. TACROLIMUS [Interacting]
     Active Substance: TACROLIMUS
     Indication: Immunosuppressant drug therapy
     Dosage: 1 MILLIGRAM, BID
     Route: 065
  5. TACROLIMUS [Interacting]
     Active Substance: TACROLIMUS
     Dosage: 7 MILLIGRAM, BID
     Route: 065
  6. LINEZOLID [Suspect]
     Active Substance: LINEZOLID
     Indication: Mycobacterium haemophilum infection
     Dosage: 600 MILLIGRAM, QD
     Route: 065
  7. BASILIXIMAB [Suspect]
     Active Substance: BASILIXIMAB
     Indication: Immunosuppressant drug therapy
     Dosage: UNK
     Route: 065
  8. BELATACEPT [Suspect]
     Active Substance: BELATACEPT
     Indication: Immunosuppressant drug therapy
     Dosage: 350 MILLIGRAM, Q28D
     Route: 042
  9. CIPROFLOXACIN [Interacting]
     Active Substance: CIPROFLOXACIN
     Indication: Mycobacterium haemophilum infection
     Dosage: 500 MILLIGRAM, BID
     Route: 065
  10. RIFABUTIN [Interacting]
     Active Substance: RIFABUTIN
     Indication: Mycobacterium haemophilum infection
     Dosage: 300 MILLIGRAM, QD
     Route: 065
  11. AZITHROMYCIN [Interacting]
     Active Substance: AZITHROMYCIN
     Indication: Mycobacterium haemophilum infection
     Dosage: 500 MILLIGRAM, QD
     Route: 065
  12. CLOFAZIMINE [Interacting]
     Active Substance: CLOFAZIMINE
     Indication: Mycobacterium haemophilum infection
     Dosage: 100 MILLIGRAM, QD
     Route: 065
  13. RIBAVIRIN [Concomitant]
     Active Substance: RIBAVIRIN
     Indication: Respiratory syncytial virus infection
     Dosage: UNK
     Route: 048

REACTIONS (6)
  - Mycobacterium haemophilum infection [Unknown]
  - Respiratory syncytial virus infection [Recovered/Resolved]
  - Neuropathy peripheral [Unknown]
  - Immunosuppressant drug level decreased [Unknown]
  - Electrocardiogram QT prolonged [Unknown]
  - Drug interaction [Unknown]
